FAERS Safety Report 22673159 (Version 3)
Quarter: 2024Q1

REPORT INFORMATION
  Report Type: Report from Study
  Country: US (occurrence: US)
  Receive Date: 20230705
  Receipt Date: 20240110
  Transmission Date: 20240410
  Serious: Yes (Other)
  Sender: FDA-Public Use
  Company Number: US-ABBVIE-5315847

PATIENT
  Age: 67 Year
  Sex: Female

DRUGS (4)
  1. DEPAKOTE [Suspect]
     Active Substance: DIVALPROEX SODIUM
     Indication: Product used for unknown indication
     Route: 048
  2. DUPIXENT [Suspect]
     Active Substance: DUPILUMAB
     Indication: Asthma
     Dosage: SOLUTION FOR INJECTION, 175 MG/ML , DOSE 400 MG?FORM STRENGTH: 200 MILLIGRAMS
     Route: 058
     Dates: start: 202307, end: 202307
  3. DUPIXENT [Suspect]
     Active Substance: DUPILUMAB
     Indication: Asthma
     Dosage: 2 DF, 1X?FORM STRENGTH: 200 MILLIGRAMS
     Route: 058
     Dates: start: 202306, end: 202306
  4. DUPIXENT [Suspect]
     Active Substance: DUPILUMAB
     Indication: Asthma
     Dosage: SOLUTION FOR INJECTION, 175 MG/ML ?FORM STRENGTH: 200 MILLIGRAMS
     Route: 058
     Dates: start: 202307

REACTIONS (6)
  - Leukaemia [Unknown]
  - Dyspnoea [Unknown]
  - Accidental exposure to product [Unknown]
  - Haemoglobin decreased [Unknown]
  - Inappropriate schedule of product administration [Unknown]
  - Exposure via skin contact [Unknown]

NARRATIVE: CASE EVENT DATE: 20230101
